FAERS Safety Report 4716760-6 (Version None)
Quarter: 2005Q3

REPORT INFORMATION
  Report Type: 
  Country: None (occurrence: None)
  Receive Date: 20050714
  Receipt Date: 20050701
  Transmission Date: 20060218
  Serious: Yes (Disabling, Other)
  Sender: FDA-Public Use
  Company Number: 2005096123

PATIENT
  Sex: Male

DRUGS (1)
  1. DETROL LA [Suspect]
     Indication: ILL-DEFINED DISORDER
     Dosage: 4 MG (4 MG, 1 IN 1 D)
     Dates: start: 20050101

REACTIONS (5)
  - ANXIETY [None]
  - CONFUSIONAL STATE [None]
  - DIALYSIS [None]
  - PAIN IN EXTREMITY [None]
  - PARALYSIS [None]
